FAERS Safety Report 8882249 (Version 1)
Quarter: 2012Q4

REPORT INFORMATION
  Report Type: 
  Country: NZ (occurrence: NZ)
  Receive Date: 20121102
  Receipt Date: 20121102
  Transmission Date: 20130627
  Serious: Yes (Hospitalization, Other)
  Sender: FDA-Public Use
  Company Number: PHHY2012NZ095617

PATIENT
  Age: 83 Year
  Sex: Male

DRUGS (7)
  1. PREDNISONE [Suspect]
     Indication: POLYARTERITIS NODOSA
     Dosage: 5 mg, daily
     Route: 048
  2. PREDNISONE [Suspect]
     Indication: RHEUMATOID ARTHRITIS
     Dosage: 40 mg, daily
     Route: 048
  3. METHOTREXATE [Concomitant]
     Indication: POLYARTERITIS NODOSA
     Dosage: 15 mg, QW
     Route: 048
  4. ALENDRONATE [Concomitant]
     Dosage: 70 mg, QW
  5. OMEPRAZOLE [Concomitant]
     Dosage: 20 mg, daily
  6. FOLIC ACID [Concomitant]
  7. PARACETAMOL [Concomitant]

REACTIONS (9)
  - Rash pruritic [Recovered/Resolved]
  - Weight decreased [Unknown]
  - Fatigue [Unknown]
  - Retching [Unknown]
  - Nausea [Unknown]
  - Monocytosis [Recovered/Resolved]
  - Neutrophilia [Recovered/Resolved]
  - Granulocytes abnormal [Recovered/Resolved]
  - Neutrophil hypersegmented morphology present [Recovered/Resolved]
